FAERS Safety Report 19148254 (Version 1)
Quarter: 2021Q2

REPORT INFORMATION
  Report Type: Spontaneous
  Country: SE (occurrence: SE)
  Receive Date: 20210416
  Receipt Date: 20210416
  Transmission Date: 20210717
  Serious: Yes (Disabling, Other)
  Sender: FDA-Public Use
  Company Number: SE-IPSEN BIOPHARMACEUTICALS, INC.-2021-09456

PATIENT
  Age: 55 Year
  Sex: Female

DRUGS (3)
  1. BOTULINUM TOXIN TYPE A [Suspect]
     Active Substance: BOTULINUM TOXIN TYPE A
     Indication: SKIN WRINKLING
     Dosage: 120 IU
     Route: 065
     Dates: start: 201704, end: 201704
  2. BOTULINUM TOXIN TYPE A [Suspect]
     Active Substance: BOTULINUM TOXIN TYPE A
     Indication: OFF LABEL USE
  3. BOTULINUM TOXIN TYPE A [Suspect]
     Active Substance: BOTULINUM TOXIN TYPE A
     Indication: SKIN WRINKLING

REACTIONS (17)
  - Dysarthria [Recovered/Resolved]
  - Dysphagia [Not Recovered/Not Resolved]
  - Muscular weakness [Recovered/Resolved]
  - Product use in unapproved therapeutic environment [Unknown]
  - Off label use [Unknown]
  - Muscle disorder [Recovering/Resolving]
  - Drooling [Recovering/Resolving]
  - Dyspnoea [Recovered/Resolved]
  - Facial paresis [Recovering/Resolving]
  - Suspected counterfeit product [Unknown]
  - Thanatophobia [Recovering/Resolving]
  - Gastrooesophageal reflux disease [Not Recovered/Not Resolved]
  - Vomiting [Recovered/Resolved]
  - Patient dissatisfaction with treatment [Unknown]
  - Weight decreased [Recovering/Resolving]
  - Eyelid ptosis [Recovering/Resolving]
  - Adverse event [Recovering/Resolving]

NARRATIVE: CASE EVENT DATE: 2017
